FAERS Safety Report 9872447 (Version 1)
Quarter: 2014Q1

REPORT INFORMATION
  Report Type: Other
  Country: US (occurrence: US)
  Receive Date: 20140206
  Receipt Date: 20140206
  Transmission Date: 20141002
  Serious: Yes (Other)
  Sender: FDA-Public Use
  Company Number: US-ACORDA-ACO_100021_2013

PATIENT
  Age: 63 Year
  Sex: Female

DRUGS (8)
  1. AMPYRA [Suspect]
     Indication: PRODUCT USED FOR UNKNOWN INDICATION
     Dosage: 10 MG, BID
     Route: 048
  2. TECFIDERA [Suspect]
     Indication: PRODUCT USED FOR UNKNOWN INDICATION
     Dosage: UNK
     Route: 065
     Dates: end: 201310
  3. COPAXONE [Concomitant]
     Indication: PRODUCT USED FOR UNKNOWN INDICATION
     Dosage: UNK
  4. PHENERGAN [Concomitant]
     Indication: NAUSEA
  5. ANTIBIOTICS [Concomitant]
     Indication: HERPES ZOSTER
     Dosage: UNK
     Dates: start: 201310
  6. ALL OTHER THERAPEUTIC PRODUCTS [Concomitant]
     Indication: PRODUCT USED FOR UNKNOWN INDICATION
     Route: 042
  7. ANTIVIRALS [Concomitant]
     Indication: HERPES ZOSTER
     Dosage: UNK
  8. ALL OTHER THERAPEUTIC PRODUCTS [Concomitant]
     Indication: MIGRAINE

REACTIONS (2)
  - Migraine [Not Recovered/Not Resolved]
  - Herpes zoster [Not Recovered/Not Resolved]
